FAERS Safety Report 7240830-4 (Version None)
Quarter: 2011Q1

REPORT INFORMATION
  Report Type: 
  Country: None (occurrence: None)
  Receive Date: 20110124
  Receipt Date: 20110114
  Transmission Date: 20110831
  Serious: Yes (Hospitalization)
  Sender: FDA-Public Use
  Company Number: GB-TEVA-253496ISR

PATIENT
  Sex: Male

DRUGS (12)
  1. TRIMETHOPRIM [Concomitant]
     Indication: URINARY TRACT INFECTION
     Dates: start: 20080521
  2. RANITIDINE HYDROCHLORIDE [Concomitant]
     Indication: PROPHYLAXIS
     Route: 048
     Dates: start: 20081219
  3. PREDNISOLONE [Suspect]
     Indication: PROSTATE CANCER METASTATIC
     Route: 048
     Dates: start: 20090106
  4. PARACETAMOL [Concomitant]
     Indication: BACK PAIN
     Route: 048
     Dates: start: 20080401
  5. TRIMETHOPRIM [Concomitant]
     Dates: start: 20080529
  6. LEUPRORELIN [Concomitant]
     Indication: HORMONE THERAPY
     Route: 030
     Dates: start: 20090106
  7. ABIRATERONE ACETATE / PLACEBO - BLINDED [Suspect]
     Indication: PROSTATE CANCER METASTATIC
     Route: 048
     Dates: start: 20090106, end: 20101019
  8. AMLODIPINE [Concomitant]
     Indication: HYPERTENSION
     Route: 048
     Dates: start: 20060818
  9. CARMELLOSE SODIUM [Concomitant]
     Indication: PRODUCT USED FOR UNKNOWN INDICATION
     Route: 047
     Dates: start: 20091207
  10. QUININE SULFATE [Concomitant]
     Indication: MUSCLE SPASMS
     Route: 048
  11. AUGMENTIN '125' [Concomitant]
     Indication: URINARY TRACT INFECTION
     Route: 048
     Dates: start: 20100813
  12. LEUPRORELIN [Concomitant]
     Indication: PROSTATE CANCER
     Dates: start: 20051219

REACTIONS (2)
  - URINARY TRACT INFECTION [None]
  - SEPSIS [None]
